FAERS Safety Report 13718542 (Version 15)
Quarter: 2021Q4

REPORT INFORMATION
  Report Type: Spontaneous
  Country: US (occurrence: US)
  Receive Date: 20170705
  Receipt Date: 20211223
  Transmission Date: 20220303
  Serious: Yes (Other)
  Sender: FDA-Public Use
  Company Number: US-PFIZER INC-2017286467

PATIENT
  Age: 54 Year
  Sex: Female
  Weight: 82.798 kg

DRUGS (8)
  1. DILANTIN [Suspect]
     Active Substance: PHENYTOIN
     Indication: Partial seizures
     Dosage: UNK
     Dates: start: 1972, end: 1974
  2. DILANTIN [Suspect]
     Active Substance: PHENYTOIN
     Indication: Epilepsy
     Dosage: UNK
     Dates: start: 1977
  3. DILANTIN [Suspect]
     Active Substance: PHENYTOIN
     Indication: Generalised anxiety disorder
     Dosage: 100 MG, 3X/DAY (ONE IN MORNING, ONE AT LUNCH, ONE AT BEDTIME)
     Dates: start: 20170707
  4. DILANTIN [Suspect]
     Active Substance: PHENYTOIN
     Indication: Seizure
     Dosage: 50 MG, 1X/DAY (ONE AT 3 PM)
  5. DILANTIN [Suspect]
     Active Substance: PHENYTOIN
     Dosage: 100 MG, 3X/DAY (MORNING, LUNCH, AND EVENING)
     Route: 048
  6. DILANTIN [Suspect]
     Active Substance: PHENYTOIN
     Dosage: 50 MG
  7. DILANTIN [Suspect]
     Active Substance: PHENYTOIN
     Dosage: 350 MG, DAILY (350 MG PER DAY: 100MG IN MORNING, 100MG AT LUNCH, 100MG AT BEDTIME AND 50MG AT 3PM)
  8. DILANTIN [Suspect]
     Active Substance: PHENYTOIN
     Dosage: 100 MG

REACTIONS (3)
  - Toxicity to various agents [Unknown]
  - Gait disturbance [Not Recovered/Not Resolved]
  - Hypoaesthesia [Unknown]
